FAERS Safety Report 7413444-0 (Version None)
Quarter: 2011Q2

REPORT INFORMATION
  Report Type: 
  Country: None (occurrence: None)
  Receive Date: 20110413
  Receipt Date: 20110406
  Transmission Date: 20111010
  Serious: Yes (Other)
  Sender: FDA-Public Use
  Company Number: PHEH2008US05422

PATIENT
  Sex: Female

DRUGS (5)
  1. WATER PILLS [Concomitant]
  2. SULFADIAZINE [Concomitant]
  3. LOPRESSOR [Suspect]
     Dosage: 50 MG, TID
  4. METOPROLOL TARTRATE [Suspect]
     Dosage: 50 MG, TID
  5. ALDACTONE [Concomitant]

REACTIONS (5)
  - DYSPNOEA [None]
  - HEADACHE [None]
  - MALAISE [None]
  - HEART RATE IRREGULAR [None]
  - PALPITATIONS [None]
